FAERS Safety Report 7814403-6 (Version None)
Quarter: 2011Q4

REPORT INFORMATION
  Report Type: 
  Country: None (occurrence: None)
  Receive Date: 20111014
  Receipt Date: 20111004
  Transmission Date: 20120403
  Serious: Yes (Hospitalization, Other)
  Sender: FDA-Public Use
  Company Number: PHHY2011NL81119

PATIENT
  Age: 49 Year
  Sex: Male

DRUGS (19)
  1. TEMAZEPAM [Concomitant]
     Dosage: 10 MG, DAILY
  2. RISPERIDONE [Concomitant]
     Dosage: 2 MG, UNK
  3. CLOZAPINE [Suspect]
     Dosage: 250 MG, UNK
  4. OXAZEPAM [Concomitant]
     Dosage: 20 MG, DAILY
  5. CLOZAPINE [Suspect]
     Indication: SCHIZOPHRENIA, PARANOID TYPE
     Dosage: 325 MG, DAILY
  6. QUETIAPINE [Concomitant]
     Dosage: 600 MG, UNK
  7. HALOPERIDOL [Concomitant]
     Dosage: 5 MG, DAILY
  8. BARNIDIPINE [Concomitant]
     Dosage: 20 MG, UNK
  9. OXAZEPAM [Concomitant]
     Dosage: 40 MG, DAILY
  10. SIMVASTATIN [Concomitant]
     Dosage: 40 MG, DAILY
  11. FOLIC ACID [Concomitant]
  12. CLOZAPINE [Suspect]
     Dosage: 300 MG, DAILY
  13. QUETIAPINE [Concomitant]
     Dosage: 75 MG, DAILY
  14. ENALAPRIL MALEATE [Concomitant]
     Dosage: 10 MG, DAILY
  15. ESOMEPRAZOLE SODIUM [Concomitant]
     Dosage: 40 MG, DAILY
  16. VITAMIN B-12 [Concomitant]
  17. LOSARTAN POTASSIUM [Concomitant]
     Dosage: 100 MG, DAILY
  18. CLOZAPINE [Suspect]
     Dosage: 500 MG, UNK
  19. BARNIDIPINE [Concomitant]
     Dosage: 10 MG, DAILY

REACTIONS (15)
  - ISCHAEMIA [None]
  - PSYCHOTIC DISORDER [None]
  - VITAMIN B12 DEFICIENCY [None]
  - TONGUE OEDEMA [None]
  - TACHYCARDIA [None]
  - BLOOD FOLATE DECREASED [None]
  - HYPERTENSIVE CRISIS [None]
  - EYELID OEDEMA [None]
  - EXTRAPYRAMIDAL DISORDER [None]
  - OEDEMA [None]
  - HEMIPARESIS [None]
  - PERIORBITAL OEDEMA [None]
  - LACUNAR INFARCTION [None]
  - LEFT VENTRICULAR HYPERTROPHY [None]
  - HYPERTENSION [None]
